FAERS Safety Report 7113508-5 (Version None)
Quarter: 2010Q4

REPORT INFORMATION
  Report Type: 
  Country: None (occurrence: None)
  Receive Date: 20101119
  Receipt Date: 20101109
  Transmission Date: 20110411
  Serious: No
  Sender: FDA-Public Use
  Company Number: US-PFIZER INC-2010145896

PATIENT
  Sex: Female

DRUGS (5)
  1. PRISTIQ [Suspect]
     Indication: MAJOR DEPRESSION
     Dosage: 50 MG, 1X/DAY
     Dates: start: 20101001
  2. TRAZODONE [Concomitant]
     Dosage: 200 MG, UNK
  3. LISINOPRIL [Concomitant]
     Dosage: UNK
  4. DALMANE [Concomitant]
     Dates: end: 20101108
  5. ZOLPIDEM TARTRATE [Concomitant]
     Dosage: UNK
     Dates: start: 20101108

REACTIONS (3)
  - CONSTIPATION [None]
  - DIARRHOEA [None]
  - WEIGHT DECREASED [None]
